FAERS Safety Report 16819603 (Version 1)
Quarter: 2019Q3

REPORT INFORMATION
  Report Type: Spontaneous
  Country: RU (occurrence: RU)
  Receive Date: 20190917
  Receipt Date: 20190917
  Transmission Date: 20191005
  Serious: Yes (Hospitalization, Other)
  Sender: FDA-Public Use
  Company Number: RU-ACTELION-A-US2019-195755

PATIENT
  Age: 57 Year
  Sex: Female

DRUGS (1)
  1. VENTAVIS [Suspect]
     Active Substance: ILOPROST
     Indication: PULMONARY ARTERIAL HYPERTENSION
     Dosage: 5 MCG/24 HR; 6X A DAY
     Route: 055

REACTIONS (6)
  - Off label use [Unknown]
  - Right ventricular failure [Unknown]
  - Pulmonary arterial hypertension [Unknown]
  - Generalised oedema [Unknown]
  - Product use in unapproved indication [Unknown]
  - Condition aggravated [Unknown]
